FAERS Safety Report 21022771 (Version 2)
Quarter: 2022Q3

REPORT INFORMATION
  Report Type: Spontaneous
  Country: JP (occurrence: JP)
  Receive Date: 20220629
  Receipt Date: 20220826
  Transmission Date: 20221027
  Serious: Yes (Hospitalization, Other)
  Sender: FDA-Public Use
  Company Number: JP-TAIHO-AB220504_P_1

PATIENT
  Age: 75 Year
  Sex: Male

DRUGS (3)
  1. ABRAXANE [Suspect]
     Active Substance: PACLITAXEL
     Indication: Squamous cell carcinoma of lung
     Dosage: DETAILS NOT REPORTED
     Route: 041
     Dates: start: 20180705
  2. ABRAXANE [Suspect]
     Active Substance: PACLITAXEL
  3. AQUPLA [Suspect]
     Active Substance: NEDAPLATIN
     Indication: Squamous cell carcinoma of lung
     Dosage: DETAILS NOT REPORTED
     Route: 041
     Dates: start: 20180705

REACTIONS (3)
  - Renal impairment [Unknown]
  - Hyperkalaemia [Unknown]
  - Off label use [Unknown]

NARRATIVE: CASE EVENT DATE: 20181201
